FAERS Safety Report 4642154-8 (Version None)
Quarter: 2005Q2

REPORT INFORMATION
  Report Type: 
  Country: None (occurrence: None)
  Receive Date: 20050420
  Receipt Date: 20050414
  Transmission Date: 20051028
  Serious: No
  Sender: FDA-Public Use
  Company Number: 2005UW05801

PATIENT
  Sex: Male

DRUGS (1)
  1. SEROQUEL [Suspect]

REACTIONS (1)
  - SUICIDE ATTEMPT [None]
